FAERS Safety Report 6727485-X (Version None)
Quarter: 2010Q2

REPORT INFORMATION
  Report Type: 
  Country: None (occurrence: None)
  Receive Date: 20100517
  Receipt Date: 20100507
  Transmission Date: 20101027
  Serious: Yes (Death, Hospitalization, Other)
  Sender: FDA-Public Use
  Company Number: GB-BRISTOL-MYERS SQUIBB COMPANY-15058761

PATIENT
  Age: 46 Year
  Sex: Male

DRUGS (7)
  1. CARBOPLATIN [Suspect]
  2. MORPHINE SULFATE [Suspect]
     Indication: PAIN
  3. WARFARIN SODIUM [Suspect]
     Indication: PULMONARY EMBOLISM
  4. WARFARIN SODIUM [Suspect]
     Indication: DEEP VEIN THROMBOSIS
  5. DEXAMETHASONE [Suspect]
     Indication: FATIGUE
     Route: 048
  6. NAPROXEN [Suspect]
     Indication: PAIN PROPHYLAXIS
  7. NULYTELY [Suspect]
     Indication: CONSTIPATION

REACTIONS (5)
  - HYPERKALAEMIA [None]
  - HYPONATRAEMIA [None]
  - MALIGNANT NEOPLASM PROGRESSION [None]
  - RENAL IMPAIRMENT [None]
  - TUMOUR HAEMORRHAGE [None]
